FAERS Safety Report 16508284 (Version 1)
Quarter: 2019Q3

REPORT INFORMATION
  Report Type: Spontaneous
  Country: NO (occurrence: NO)
  Receive Date: 20190701
  Receipt Date: 20190701
  Transmission Date: 20191004
  Serious: Yes (Disabling)
  Sender: FDA-Public Use
  Company Number: NO-MYLANLABS-2019M1059331

PATIENT
  Age: 63 Year
  Sex: Female
  Weight: 62 kg

DRUGS (1)
  1. ALENDRONAT [Suspect]
     Active Substance: ALENDRONATE SODIUM
     Indication: OSTEOPOROSIS PROPHYLAXIS
     Dosage: 70 MILLIGRAM, QW
     Route: 048
     Dates: start: 20181119, end: 20181211

REACTIONS (3)
  - Joint stiffness [Recovering/Resolving]
  - Joint swelling [Recovering/Resolving]
  - Bone pain [Recovering/Resolving]

NARRATIVE: CASE EVENT DATE: 20181119
